FAERS Safety Report 7669261-X (Version None)
Quarter: 2011Q3

REPORT INFORMATION
  Report Type: 
  Country: None (occurrence: None)
  Receive Date: 20110808
  Receipt Date: 20110801
  Transmission Date: 20111222
  Serious: Yes (Other)
  Sender: FDA-Public Use
  Company Number: PHHY2011US69580

PATIENT

DRUGS (1)
  1. ZOMETA [Suspect]

REACTIONS (4)
  - BONE PAIN [None]
  - VOMITING [None]
  - PYREXIA [None]
  - LOSS OF CONSCIOUSNESS [None]
